FAERS Safety Report 6709181-8 (Version None)
Quarter: 2010Q2

REPORT INFORMATION
  Report Type: 
  Country: None (occurrence: None)
  Receive Date: 20100504
  Receipt Date: 20100423
  Transmission Date: 20101027
  Serious: Yes (Death, Hospitalization, Other)
  Sender: FDA-Public Use
  Company Number: US-TYCO HEALTHCARE/MALLINCKRODT-T201001105

PATIENT
  Sex: Male
  Weight: 85.714 kg

DRUGS (6)
  1. OPTIMARK [Suspect]
     Indication: NUCLEAR MAGNETIC RESONANCE IMAGING
     Dosage: 15 ML, SINGLE
     Route: 042
     Dates: start: 20061027, end: 20061027
  2. OMNISCAN [Suspect]
     Indication: NUCLEAR MAGNETIC RESONANCE IMAGING BRAIN
     Dosage: 15 ML, SINGLE
     Route: 042
     Dates: start: 20020102, end: 20020102
  3. OMNISCAN [Suspect]
     Indication: ANGIOGRAM
     Dosage: UNK, SINGLE
     Route: 042
     Dates: start: 20051020, end: 20051020
  4. OMNISCAN [Suspect]
     Indication: NUCLEAR MAGNETIC RESONANCE IMAGING
     Dosage: 42 ML, SINGLE
     Route: 042
     Dates: start: 20060426, end: 20060426
  5. OMNISCAN [Suspect]
     Dosage: 22 ML, SINGLE
     Route: 042
     Dates: start: 20060428, end: 20060428
  6. GADOLINIUM [Suspect]
     Indication: NUCLEAR MAGNETIC RESONANCE IMAGING BRAIN
     Dosage: UNK
     Dates: start: 20021118, end: 20021118

REACTIONS (13)
  - BLISTER [None]
  - CARDIO-RESPIRATORY ARREST [None]
  - CARDIOMEGALY [None]
  - DYSPHAGIA [None]
  - DYSPHONIA [None]
  - IMPAIRED HEALING [None]
  - LARYNGEAL MASS [None]
  - NEPHROGENIC SYSTEMIC FIBROSIS [None]
  - OESOPHAGEAL INFECTION [None]
  - OFF LABEL USE [None]
  - PNEUMONIA [None]
  - SUBDURAL HAEMORRHAGE [None]
  - VASCULAR STENOSIS [None]
